FAERS Safety Report 9426422 (Version 1)
Quarter: 2013Q3

REPORT INFORMATION
  Report Type: Spontaneous
  Country: US (occurrence: US)
  Receive Date: 20130730
  Receipt Date: 20130730
  Transmission Date: 20140515
  Serious: Yes (Hospitalization)
  Sender: FDA-Public Use
  Company Number: US-BAYER-2013-091757

PATIENT
  Age: 47 Year
  Sex: Female

DRUGS (3)
  1. YAZ [Suspect]
  2. MERIDIA [Concomitant]
     Dosage: UNK
     Dates: start: 20070918, end: 20080627
  3. MERIDIA [Concomitant]
     Dosage: UNK
     Dates: start: 20080912, end: 20100811

REACTIONS (1)
  - Thrombophlebitis superficial [None]
